FAERS Safety Report 8197867-0 (Version None)
Quarter: 2012Q1

REPORT INFORMATION
  Report Type: 
  Country: None (occurrence: None)
  Receive Date: 20120309
  Receipt Date: 20120229
  Transmission Date: 20120608
  Serious: Yes (Other)
  Sender: FDA-Public Use
  Company Number: US-SANOFI-AVENTIS-2012SA013870

PATIENT
  Age: 75 Year
  Sex: Male

DRUGS (3)
  1. SPIRIVA [Concomitant]
  2. LANTUS [Suspect]
     Dosage: DOSE:15 UNIT(S)
     Route: 058
  3. SOLOSTAR [Suspect]

REACTIONS (5)
  - PROSTATE CANCER [None]
  - DECREASED APPETITE [None]
  - WEIGHT DECREASED [None]
  - CHRONIC OBSTRUCTIVE PULMONARY DISEASE [None]
  - BLOOD GLUCOSE INCREASED [None]
